FAERS Safety Report 24418962 (Version 2)
Quarter: 2024Q4

REPORT INFORMATION
  Report Type: Report from Study
  Country: US (occurrence: US)
  Receive Date: 20241009
  Receipt Date: 20241018
  Transmission Date: 20250115
  Serious: No
  Sender: ROCHE
  Company Number: US-ROCHE-3431858

PATIENT
  Age: 78 Year
  Sex: Male

DRUGS (4)
  1. CATHFLO ACTIVASE [Suspect]
     Active Substance: ALTEPLASE
     Indication: Cardiogenic shock
     Dosage: DATE OF SERVICE: 29/AUG/2023, 30/AUG/2023
     Route: 065
  2. CATHFLO ACTIVASE [Suspect]
     Active Substance: ALTEPLASE
     Indication: Arteriosclerosis coronary artery
  3. ACTIVASE [Suspect]
     Active Substance: ALTEPLASE
     Indication: Cardiogenic shock
     Dosage: DATE OF SERVICE- 02/SEP/2023
     Route: 065
  4. ACTIVASE [Suspect]
     Active Substance: ALTEPLASE
     Indication: Arteriosclerosis coronary artery

REACTIONS (3)
  - Off label use [Unknown]
  - No adverse event [Unknown]
  - Off label use [Unknown]
